FAERS Safety Report 6988529-3 (Version None)
Quarter: 2010Q3

REPORT INFORMATION
  Report Type: 
  Country: None (occurrence: None)
  Receive Date: 20100916
  Receipt Date: 20100906
  Transmission Date: 20110219
  Serious: Yes (Other)
  Sender: FDA-Public Use
  Company Number: US-PFIZER INC-2010093382

PATIENT
  Sex: Female
  Weight: 61.4 kg

DRUGS (3)
  1. DOXORUBICIN HCL [Suspect]
     Indication: BREAST CANCER
     Dosage: 86 MG, CYCLIC
     Dates: start: 20090901, end: 20091204
  2. TAXOTERE [Suspect]
     Indication: BREAST CANCER
     Dosage: 86 MG, (75 MG/M2)
     Route: 040
     Dates: start: 20091229, end: 20100326
  3. CYTOXAN [Concomitant]
     Indication: BREAST CANCER
     Dosage: 860 MG, CYCLIC
     Dates: start: 20090909, end: 20091204

REACTIONS (2)
  - TENDONITIS [None]
  - TINNITUS [None]
